FAERS Safety Report 22137789 (Version 6)
Quarter: 2023Q2

REPORT INFORMATION
  Report Type: Spontaneous
  Country: CA (occurrence: CA)
  Receive Date: 20230325
  Receipt Date: 20230628
  Transmission Date: 20230721
  Serious: Yes (Hospitalization, Other)
  Sender: FDA-Public Use
  Company Number: CA-CELLTRION INC.-2023CA006272

PATIENT

DRUGS (6)
  1. INFLECTRA [Suspect]
     Active Substance: INFLIXIMAB-DYYB
     Indication: Crohn^s disease
     Dosage: 5 MG/KG, INDUCTION DOSES AT WEEK 0, 2 AND 6, THEN EVERY 8 WEEKS
     Route: 042
     Dates: start: 20230203
  2. INFLECTRA [Suspect]
     Active Substance: INFLIXIMAB-DYYB
     Dosage: 5 MG/KG, INDUCTION DOSES AT WEEK 0, 2 AND 6, THEN EVERY 8 WEEKS
     Route: 042
     Dates: start: 20230217
  3. INFLECTRA [Suspect]
     Active Substance: INFLIXIMAB-DYYB
     Dosage: 375 MG (5 MG/KG) ON WEEK 6
     Route: 042
     Dates: start: 20230317
  4. INFLECTRA [Suspect]
     Active Substance: INFLIXIMAB-DYYB
     Dosage: 375 MG (5 MG/KG) ON WEEK 6
     Route: 042
     Dates: start: 20230317
  5. INFLECTRA [Suspect]
     Active Substance: INFLIXIMAB-DYYB
     Dosage: 390 MG (5 MG/KG), EVERY 8 WEEKS
     Route: 042
     Dates: start: 20230512
  6. INFLECTRA [Suspect]
     Active Substance: INFLIXIMAB-DYYB
     Dosage: 390 MG (5 MG/KG), EVERY 8 WEEKS
     Route: 042
     Dates: start: 20230512

REACTIONS (9)
  - Ileal perforation [Unknown]
  - Pain [Recovering/Resolving]
  - Flatulence [Not Recovered/Not Resolved]
  - Therapy non-responder [Unknown]
  - Enteritis [Not Recovered/Not Resolved]
  - Condition aggravated [Recovered/Resolved]
  - Fistula [Unknown]
  - Gastrointestinal wall thickening [Unknown]
  - Intestinal lipomatosis [Unknown]

NARRATIVE: CASE EVENT DATE: 20230301
